APPROVED DRUG PRODUCT: SODIUM POLYSTYRENE SULFONATE
Active Ingredient: SODIUM POLYSTYRENE SULFONATE
Strength: 453.6GM/BOT
Dosage Form/Route: POWDER;ORAL, RECTAL
Application: A202333 | Product #001 | TE Code: AA
Applicant: EPIC PHARMA LLC
Approved: Mar 19, 2014 | RLD: No | RS: No | Type: RX